FAERS Safety Report 8056675-1 (Version None)
Quarter: 2012Q1

REPORT INFORMATION
  Report Type: 
  Country: None (occurrence: None)
  Receive Date: 20120119
  Receipt Date: 20120118
  Transmission Date: 20120608
  Serious: No
  Sender: FDA-Public Use
  Company Number: US-TEVA-310217USA

PATIENT
  Sex: Female

DRUGS (4)
  1. MECLOZINE [Concomitant]
  2. BACLOFEN [Concomitant]
  3. COPAXONE [Suspect]
     Indication: MULTIPLE SCLEROSIS
     Route: 058
     Dates: start: 20090624
  4. OXYBUTYNIN [Concomitant]

REACTIONS (1)
  - HERPES ZOSTER [None]
